FAERS Safety Report 25441962 (Version 1)
Quarter: 2025Q2

REPORT INFORMATION
  Report Type: Spontaneous
  Country: GB (occurrence: GB)
  Receive Date: 20250616
  Receipt Date: 20250616
  Transmission Date: 20250716
  Serious: Yes (Disabling, Other)
  Sender: PFIZER
  Company Number: None

PATIENT
  Sex: Male

DRUGS (3)
  1. METHOTREXATE SODIUM [Suspect]
     Active Substance: METHOTREXATE SODIUM
  2. PREDNISOLONE [Suspect]
     Active Substance: PREDNISOLONE
  3. UPADACITINIB [Suspect]
     Active Substance: UPADACITINIB

REACTIONS (2)
  - Retinal vasculitis [Recovered/Resolved with Sequelae]
  - Cytomegalovirus infection [Unknown]
